FAERS Safety Report 21776811 (Version 1)
Quarter: 2022Q4

REPORT INFORMATION
  Report Type: Report from Study
  Country: US (occurrence: US)
  Receive Date: 20221226
  Receipt Date: 20221226
  Transmission Date: 20230112
  Serious: No
  Sender: FDA-Public Use
  Company Number: US-ABBVIE-4249464

PATIENT
  Age: 65 Year
  Sex: Male

DRUGS (1)
  1. SKYRIZI [Suspect]
     Active Substance: RISANKIZUMAB-RZAA
     Indication: Product used for unknown indication
     Dosage: ONSET FOR EVENT RUNNY NOSE AND COUGH: 2022
     Route: 058
     Dates: start: 20220921

REACTIONS (3)
  - Rhinorrhoea [Unknown]
  - SARS-CoV-2 test positive [Unknown]
  - Cough [Unknown]

NARRATIVE: CASE EVENT DATE: 20221218
